FAERS Safety Report 7824631-1 (Version None)
Quarter: 2011Q4

REPORT INFORMATION
  Report Type: 
  Country: None (occurrence: None)
  Receive Date: 20111014
  Receipt Date: 20110928
  Transmission Date: 20120403
  Serious: No
  Sender: FDA-Public Use
  Company Number: LTI2011A00253

PATIENT
  Age: 85 Year
  Sex: Male

DRUGS (10)
  1. ACTOS [Suspect]
     Indication: TYPE 2 DIABETES MELLITUS
     Dosage: 30 MG (30 MG, 1 IN 1 D) ORAL,  45 MG (45 MG,1 IN 1 D) 1) ORAL
     Route: 048
     Dates: start: 20050101, end: 20060101
  2. ACTOS [Suspect]
     Indication: TYPE 2 DIABETES MELLITUS
     Dosage: 30 MG (30 MG, 1 IN 1 D) ORAL,  45 MG (45 MG,1 IN 1 D) 1) ORAL
     Route: 048
     Dates: start: 20060101, end: 20090101
  3. RILMENIDINE (RILMENIDINE) [Concomitant]
  4. FUROSEMIDE [Concomitant]
  5. GLYBURIDE [Concomitant]
  6. JANUVIA [Concomitant]
  7. ASPIRIN [Concomitant]
  8. AMLODIPINE [Concomitant]
  9. IRBESARTAN AND HYDROCHLOROTHIAZIDE [Concomitant]
  10. LANTUS [Concomitant]

REACTIONS (1)
  - BLADDER TRANSITIONAL CELL CARCINOMA [None]
